FAERS Safety Report 25836202 (Version 1)
Quarter: 2025Q3

REPORT INFORMATION
  Report Type: Spontaneous
  Country: US (occurrence: None)
  Receive Date: 20250922
  Receipt Date: 20250922
  Transmission Date: 20251020
  Serious: Yes (Hospitalization)
  Sender: FDA-CTU
  Company Number: None

PATIENT
  Age: 37 Year
  Sex: Female

DRUGS (1)
  1. BOSULIF [Suspect]
     Active Substance: BOSUTINIB MONOHYDRATE
     Indication: Chronic myeloid leukaemia
     Dosage: FREQUENCY : DAILY;?

REACTIONS (6)
  - Therapy interrupted [None]
  - Asthenia [None]
  - Dyspnoea [None]
  - Pain [None]
  - Nausea [None]
  - Pneumonia [None]
